FAERS Safety Report 7560935-8 (Version None)
Quarter: 2011Q2

REPORT INFORMATION
  Report Type: 
  Country: None (occurrence: None)
  Receive Date: 20110620
  Receipt Date: 20110620
  Transmission Date: 20111010
  Serious: Yes (Life-Threatening, Disabling, Other)
  Sender: FDA-Public Use
  Company Number: None

PATIENT
  Age: 55 Year
  Sex: Male
  Weight: 83.9154 kg

DRUGS (1)
  1. ATIVAN [Suspect]
     Indication: ANXIETY
     Dosage: AS GIVEN BY NURSE IV
     Route: 042

REACTIONS (8)
  - FEAR [None]
  - DELUSION [None]
  - DAYDREAMING [None]
  - INSOMNIA [None]
  - SUICIDAL IDEATION [None]
  - DYSPNOEA [None]
  - CHRONIC OBSTRUCTIVE PULMONARY DISEASE [None]
  - AGGRESSION [None]
